FAERS Safety Report 18495730 (Version 12)
Quarter: 2023Q2

REPORT INFORMATION
  Report Type: Other
  Country: GB (occurrence: GB)
  Receive Date: 20201112
  Receipt Date: 20230414
  Transmission Date: 20230722
  Serious: Yes (Other)
  Sender: FDA-Public Use
  Company Number: None

PATIENT
  Age: 36 Year
  Sex: Male

DRUGS (89)
  1. AMLODIPINE [Suspect]
     Active Substance: AMLODIPINE BESYLATE
     Indication: Product used for unknown indication
     Dosage: UNK(OTHER, UNSPECIFIED)
     Route: 065
  2. AMLODIPINE [Suspect]
     Active Substance: AMLODIPINE BESYLATE
     Dosage: UNK
     Route: 065
  3. AMLODIPINE [Suspect]
     Active Substance: AMLODIPINE BESYLATE
     Dosage: UNK (OTHER/UNSPECIFIED)
     Route: 048
  4. AMLODIPINE [Suspect]
     Active Substance: AMLODIPINE BESYLATE
     Dosage: UNK (OTHER/UNSPECIFIED)
     Route: 048
  5. AMLODIPINE [Suspect]
     Active Substance: AMLODIPINE BESYLATE
     Dosage: UNK,(UNKNOWN (OTHER/UNSPECIFIED)
     Route: 048
  6. AMLODIPINE [Suspect]
     Active Substance: AMLODIPINE BESYLATE
     Dosage: UNK,(UNKNOWN (OTHER/UNSPECIFIED)
     Route: 048
  7. AMLODIPINE [Suspect]
     Active Substance: AMLODIPINE BESYLATE
     Dosage: UNK,(UNKNOWN (OTHER/UNSPECIFIED)
     Route: 048
  8. AMLODIPINE [Suspect]
     Active Substance: AMLODIPINE BESYLATE
     Dosage: UNK,(UNKNOWN (OTHER/UNSPECIFIED)
     Route: 048
  9. AMLODIPINE [Suspect]
     Active Substance: AMLODIPINE BESYLATE
     Dosage: UNK,(UNKNOWN (OTHER/UNSPECIFIED)
     Route: 048
  10. INDAPAMIDE [Suspect]
     Active Substance: INDAPAMIDE
     Indication: Product used for unknown indication
     Dosage: UNK,FILM COATED TABLET
     Route: 065
  11. INDAPAMIDE [Suspect]
     Active Substance: INDAPAMIDE
     Dosage: UNK
     Route: 065
  12. INDAPAMIDE [Suspect]
     Active Substance: INDAPAMIDE
     Dosage: UNK, FILM COATED TABLET
     Route: 048
  13. INDAPAMIDE [Suspect]
     Active Substance: INDAPAMIDE
     Dosage: UNK, FILM COATED TABLET
     Route: 048
  14. INDAPAMIDE [Suspect]
     Active Substance: INDAPAMIDE
     Dosage: UNK,(TABLET(UNCOATED) (ORAL)
     Route: 048
  15. INDAPAMIDE [Suspect]
     Active Substance: INDAPAMIDE
     Dosage: UNK (OTHER/UNSPECIFIED)
     Route: 048
  16. INDAPAMIDE [Suspect]
     Active Substance: INDAPAMIDE
     Dosage: UNK (OTHER/UNSPECIFIED)
     Route: 048
  17. INDAPAMIDE [Suspect]
     Active Substance: INDAPAMIDE
     Dosage: UNK TABLET (UNCOATED ORAL)
     Route: 048
  18. METFORMIN [Suspect]
     Active Substance: METFORMIN HYDROCHLORIDE
     Indication: Product used for unknown indication
     Dosage: UNK,TABLET
     Route: 065
  19. METFORMIN [Suspect]
     Active Substance: METFORMIN HYDROCHLORIDE
     Dosage: UNK
     Route: 065
  20. METFORMIN [Suspect]
     Active Substance: METFORMIN HYDROCHLORIDE
     Dosage: UNK
     Route: 065
  21. METFORMIN [Suspect]
     Active Substance: METFORMIN HYDROCHLORIDE
     Dosage: UNK, TABLET(UNCOATED)(ORAL)
     Route: 048
  22. METFORMIN [Suspect]
     Active Substance: METFORMIN HYDROCHLORIDE
     Dosage: UNK(TABLET, UNCOATED(ORAL)
     Route: 048
  23. METFORMIN [Suspect]
     Active Substance: METFORMIN HYDROCHLORIDE
     Dosage: UNK(TABLET, UNCOATED(ORAL)
     Route: 048
  24. METFORMIN [Suspect]
     Active Substance: METFORMIN HYDROCHLORIDE
     Dosage: UNK(TABLET, UNCOATED(ORAL)
     Route: 048
  25. METFORMIN [Suspect]
     Active Substance: METFORMIN HYDROCHLORIDE
     Dosage: UNK(TABLET, UNCOATED(ORAL)
     Route: 048
  26. METFORMIN [Suspect]
     Active Substance: METFORMIN HYDROCHLORIDE
     Dosage: UNK(TABLET, UNCOATED(ORAL)
     Route: 048
  27. METFORMIN [Suspect]
     Active Substance: METFORMIN HYDROCHLORIDE
     Dosage: UNK
     Route: 048
  28. GLIMEPIRIDE [Suspect]
     Active Substance: GLIMEPIRIDE
     Indication: Product used for unknown indication
     Dosage: UNK(OTHER/UNSPECIFIED)
     Route: 065
  29. GLIMEPIRIDE [Suspect]
     Active Substance: GLIMEPIRIDE
     Dosage: UNK,TABLET
     Route: 065
  30. GLIMEPIRIDE [Suspect]
     Active Substance: GLIMEPIRIDE
     Dosage: UNK,TABLET (UNCOATED)
     Route: 048
  31. GLIMEPIRIDE [Suspect]
     Active Substance: GLIMEPIRIDE
     Dosage: UNK,TABLET (UNCOATED)
     Route: 048
  32. GLIMEPIRIDE [Suspect]
     Active Substance: GLIMEPIRIDE
     Dosage: UNK,TABLET (UNCOATED)
     Route: 048
  33. GLIMEPIRIDE [Suspect]
     Active Substance: GLIMEPIRIDE
     Dosage: UNK,TABLET (UNCOATED)
     Route: 048
  34. GLIMEPIRIDE [Suspect]
     Active Substance: GLIMEPIRIDE
     Dosage: UNK,TABLET (UNCOATED)
     Route: 048
  35. GLIMEPIRIDE [Suspect]
     Active Substance: GLIMEPIRIDE
     Dosage: UNK,TABLET (UNCOATED)
     Route: 048
  36. GLIMEPIRIDE [Suspect]
     Active Substance: GLIMEPIRIDE
     Dosage: UNK,(OTHER/UNSPECIFIED)
     Route: 048
  37. GLIMEPIRIDE [Suspect]
     Active Substance: GLIMEPIRIDE
     Dosage: UNK(OTHER/UNSPECIFIED)
     Route: 048
  38. GLIMEPIRIDE [Suspect]
     Active Substance: GLIMEPIRIDE
     Dosage: UNK(OTHER/UNSPECIFIED)
     Route: 048
  39. GLIMEPIRIDE [Suspect]
     Active Substance: GLIMEPIRIDE
     Dosage: UNK(OTHER/UNSPECIFIED)
     Route: 048
  40. GLIMEPIRIDE [Suspect]
     Active Substance: GLIMEPIRIDE
     Dosage: UNK(OTHER/UNSPECIFIED)
     Route: 048
  41. RAMIPRIL [Suspect]
     Active Substance: RAMIPRIL
     Indication: Product used for unknown indication
     Dosage: UNK
     Route: 065
  42. RAMIPRIL [Suspect]
     Active Substance: RAMIPRIL
     Dosage: UNK(OTHER/UNSPECIFIED)
     Route: 048
  43. RAMIPRIL [Suspect]
     Active Substance: RAMIPRIL
     Dosage: UNK(OTHER/UNSPECIFIED)
     Route: 048
  44. TAMSULOSIN [Suspect]
     Active Substance: TAMSULOSIN
     Indication: Product used for unknown indication
     Dosage: UNK (OTHER UNSPECIFIED)
     Route: 065
  45. TAMSULOSIN [Suspect]
     Active Substance: TAMSULOSIN
     Dosage: UNK
     Route: 065
  46. TAMSULOSIN [Suspect]
     Active Substance: TAMSULOSIN
     Dosage: UNK
     Route: 065
  47. TAMSULOSIN [Suspect]
     Active Substance: TAMSULOSIN
     Dosage: UNK
     Route: 065
  48. TAMSULOSIN [Suspect]
     Active Substance: TAMSULOSIN
     Dosage: UNK (UNKNOWN (OTHER/UNSPECIFIED)
     Route: 048
  49. TAMSULOSIN [Suspect]
     Active Substance: TAMSULOSIN
     Dosage: UNK (UNKNOWN (OTHER/UNSPECIFIED)
     Route: 048
  50. TAMSULOSIN [Suspect]
     Active Substance: TAMSULOSIN
     Dosage: UNK,(FINASTERIDE)(UNKNOWN (OTHER/UNSPECIFIED)
     Route: 065
  51. ATORVASTATIN CALCIUM [Suspect]
     Active Substance: ATORVASTATIN CALCIUM
     Indication: Product used for unknown indication
     Dosage: UNK
     Route: 065
  52. ATORVASTATIN CALCIUM [Suspect]
     Active Substance: ATORVASTATIN CALCIUM
     Dosage: UNK
     Route: 065
  53. ATORVASTATIN CALCIUM [Suspect]
     Active Substance: ATORVASTATIN CALCIUM
     Dosage: UNK (OTHER UNSPECIFIED)
     Route: 048
  54. ATORVASTATIN CALCIUM [Suspect]
     Active Substance: ATORVASTATIN CALCIUM
     Dosage: UNK(OTHER,UNSPECIFIED)
     Route: 048
  55. ATORVASTATIN CALCIUM [Suspect]
     Active Substance: ATORVASTATIN CALCIUM
     Dosage: UNK(OTHER,UNSPECIFIED)
     Route: 048
  56. ATORVASTATIN CALCIUM [Suspect]
     Active Substance: ATORVASTATIN CALCIUM
     Dosage: UNK(OTHER,UNSPECIFIED)
     Route: 048
  57. ATORVASTATIN CALCIUM [Suspect]
     Active Substance: ATORVASTATIN CALCIUM
     Dosage: UNK(OTHER,UNSPECIFIED)
     Route: 048
  58. QUETIAPINE FUMARATE [Suspect]
     Active Substance: QUETIAPINE FUMARATE
     Indication: Product used for unknown indication
     Dosage: UNK (PROLONGED RELASE)
     Route: 065
  59. QUETIAPINE FUMARATE [Suspect]
     Active Substance: QUETIAPINE FUMARATE
     Dosage: UNK, QUETIAPINE
     Route: 065
  60. QUETIAPINE FUMARATE [Suspect]
     Active Substance: QUETIAPINE FUMARATE
     Dosage: UNK, FILM COATED TABLET
     Route: 065
  61. QUETIAPINE FUMARATE [Suspect]
     Active Substance: QUETIAPINE FUMARATE
     Dosage: UNK, FILM COATED TABLET (QUETIAPINE FUMARATE)(PROLONGED RELEASE)
     Route: 048
  62. QUETIAPINE FUMARATE [Suspect]
     Active Substance: QUETIAPINE FUMARATE
     Dosage: UNK (TABLET UNCOATED PROLONGED RELEASE)(FILM-COATED TABLET UNKNOWN)
     Route: 048
  63. QUETIAPINE FUMARATE [Suspect]
     Active Substance: QUETIAPINE FUMARATE
     Dosage: UNK(OTHER/UNSPECIFIED)
     Route: 048
  64. QUETIAPINE FUMARATE [Suspect]
     Active Substance: QUETIAPINE FUMARATE
     Dosage: UNK,(PROLONGED RELASE TABLET)
     Route: 065
  65. QUETIAPINE FUMARATE [Suspect]
     Active Substance: QUETIAPINE FUMARATE
     Dosage: UNK (TABLET UNCOATED)
     Route: 048
  66. QUETIAPINE FUMARATE [Suspect]
     Active Substance: QUETIAPINE FUMARATE
     Dosage: UNK (TABLET UNCOATED)
     Route: 048
  67. QUETIAPINE FUMARATE [Suspect]
     Active Substance: QUETIAPINE FUMARATE
     Dosage: UNK (TABLET UNCOATED)
     Route: 048
  68. QUETIAPINE FUMARATE [Suspect]
     Active Substance: QUETIAPINE FUMARATE
     Dosage: UNK (TABLET UNCOATED)
     Route: 048
  69. QUETIAPINE FUMARATE [Suspect]
     Active Substance: QUETIAPINE FUMARATE
     Dosage: UNK (TABLET UNCOATED)
     Route: 048
  70. QUETIAPINE FUMARATE [Suspect]
     Active Substance: QUETIAPINE FUMARATE
     Dosage: UNK(PROLONGED RELASE)
     Route: 048
  71. PIOGLITAZONE [Suspect]
     Active Substance: PIOGLITAZONE
     Indication: Product used for unknown indication
     Dosage: UNK
     Route: 065
  72. PIOGLITAZONE [Suspect]
     Active Substance: PIOGLITAZONE
     Dosage: UNK,TABLET
     Route: 065
  73. PIOGLITAZONE [Suspect]
     Active Substance: PIOGLITAZONE
     Dosage: UNK, TABLET(UNCOATED)
     Route: 048
  74. PIOGLITAZONE [Suspect]
     Active Substance: PIOGLITAZONE
     Dosage: UNK(UNKNOWN (OTHER/UNSPECIFIED)
     Route: 048
  75. PIOGLITAZONE [Suspect]
     Active Substance: PIOGLITAZONE
     Dosage: UNK(UNKNOWN (OTHER/UNSPECIFIED)
     Route: 048
  76. PIOGLITAZONE [Suspect]
     Active Substance: PIOGLITAZONE
     Dosage: UNK(UNKNOWN (OTHER/UNSPECIFIED)
     Route: 048
  77. PIOGLITAZONE [Suspect]
     Active Substance: PIOGLITAZONE
     Dosage: UNK, TABLET(UNCOATED)
     Route: 048
  78. PIOGLITAZONE [Suspect]
     Active Substance: PIOGLITAZONE
     Dosage: UNK, TABLET(UNCOATED)
     Route: 048
  79. CLOZAPINE [Suspect]
     Active Substance: CLOZAPINE
     Indication: Schizophrenia
     Dosage: UNK,TABLET(UNKNOWN,OTHER UNSPECIFIED) TABLET (UNCOATED)(DURATION OF REGIMEN 3 YEARS),UNK (START DATE
     Route: 048
     Dates: start: 20181121, end: 20220417
  80. CLOZAPINE [Suspect]
     Active Substance: CLOZAPINE
     Dosage: UNK TABLET (UNCOATED, ORAL)
     Route: 048
     Dates: start: 20181121, end: 20220317
  81. CLOZAPINE [Suspect]
     Active Substance: CLOZAPINE
     Dosage: UNK (START DATE 17 MAR 2022)(DURATION OF REGIMEN3 YEARS 3 MONTHS 23 DAYS)(UNCOATED TABLET)
     Route: 048
     Dates: start: 20181121, end: 20220317
  82. AMISULPRIDE [Suspect]
     Active Substance: AMISULPRIDE
     Indication: Product used for unknown indication
     Dosage: UNK (OTHER/UNSPECIFIED)
     Route: 065
  83. AMISULPRIDE [Suspect]
     Active Substance: AMISULPRIDE
     Dosage: UNK(UNKNOWN (OTHER/UNSPECIFIED)
     Route: 048
  84. AMISULPRIDE [Suspect]
     Active Substance: AMISULPRIDE
     Dosage: UNK(UNKNOWN (OTHER/UNSPECIFIED)
     Route: 048
  85. AMISULPRIDE [Suspect]
     Active Substance: AMISULPRIDE
     Dosage: UNK(UNKNOWN (OTHER/UNSPECIFIED)
     Route: 048
  86. AMISULPRIDE [Suspect]
     Active Substance: AMISULPRIDE
     Dosage: UNK(UNKNOWN (OTHER/UNSPECIFIED)
     Route: 048
  87. AMISULPRIDE [Suspect]
     Active Substance: AMISULPRIDE
     Dosage: UNK(UNKNOWN (OTHER/UNSPECIFIED)
     Route: 048
  88. FINASTERIDE [Suspect]
     Active Substance: FINASTERIDE
     Indication: Product used for unknown indication
     Dosage: UNK (OTHER/UNSPECIFIED)
     Route: 065
  89. ATORVASTATIN [Suspect]
     Active Substance: ATORVASTATIN
     Indication: Product used for unknown indication
     Dosage: UNK
     Route: 048

REACTIONS (7)
  - Hallucination, visual [Unknown]
  - Hyperthyroidism [Unknown]
  - White blood cell count increased [Recovered/Resolved]
  - Influenza [Unknown]
  - Type 2 diabetes mellitus [Unknown]
  - Neutropenia [Recovered/Resolved]
  - White blood cell count decreased [Recovered/Resolved]

NARRATIVE: CASE EVENT DATE: 20150101
